FAERS Safety Report 23198702 (Version 1)
Quarter: 2023Q4

REPORT INFORMATION
  Report Type: Spontaneous
  Country: US (occurrence: US)
  Receive Date: 20231117
  Receipt Date: 20231117
  Transmission Date: 20240109
  Serious: No
  Sender: FDA-Public Use
  Company Number: US-PFIZER INC-PV202300186091

PATIENT
  Age: 80 Year

DRUGS (2)
  1. IBRANCE [Suspect]
     Active Substance: PALBOCICLIB
     Dosage: 125 MG, CYCLIC (21 CONSECUTIVE DAYS FOLLOWED BY 7 SAYS OFF)
     Route: 048
  2. LETROZOLE [Suspect]
     Active Substance: LETROZOLE

REACTIONS (3)
  - Nail disorder [Unknown]
  - Dyspepsia [Unknown]
  - Nausea [Unknown]
